FAERS Safety Report 25578438 (Version 1)
Quarter: 2025Q3

REPORT INFORMATION
  Report Type: Spontaneous
  Country: US (occurrence: None)
  Receive Date: 20250717
  Receipt Date: 20250717
  Transmission Date: 20251020
  Serious: Yes (unspecified)
  Sender: FDA-CTU
  Company Number: None

PATIENT
  Age: 68 Year
  Sex: Female
  Weight: 81 kg

DRUGS (1)
  1. LIVDELZI [Suspect]
     Active Substance: SELADELPAR LYSINE
     Dosage: FREQUENCY : DAILY;?
     Route: 048

REACTIONS (2)
  - Renal impairment [None]
  - Glomerular filtration rate decreased [None]

NARRATIVE: CASE EVENT DATE: 20250715
